APPROVED DRUG PRODUCT: NEURONTIN
Active Ingredient: GABAPENTIN
Strength: 800MG
Dosage Form/Route: TABLET;ORAL
Application: N020882 | Product #002 | TE Code: AB1
Applicant: VIATRIS SPECIALTY LLC
Approved: Oct 9, 1998 | RLD: Yes | RS: Yes | Type: RX